FAERS Safety Report 25335092 (Version 2)
Quarter: 2025Q2

REPORT INFORMATION
  Report Type: Spontaneous
  Country: US (occurrence: US)
  Receive Date: 20250520
  Receipt Date: 20250526
  Transmission Date: 20250716
  Serious: Yes (Hospitalization)
  Sender: TEVA
  Company Number: US-TEVA-VS-3331377

PATIENT
  Age: 59 Year
  Sex: Male

DRUGS (4)
  1. ROPINIROLE [Interacting]
     Active Substance: ROPINIROLE
     Indication: Parkinson^s disease
     Route: 065
  2. ROPINIROLE [Interacting]
     Active Substance: ROPINIROLE
     Indication: Parkinson^s disease
     Route: 065
  3. CARBIDOPA LEVODOPA [Concomitant]
     Active Substance: CARBIDOPA\LEVODOPA
     Indication: Parkinson^s disease
     Route: 065
  4. HERBALS [Interacting]
     Active Substance: HERBALS
     Indication: Supplementation therapy
     Route: 065

REACTIONS (5)
  - Herbal interaction [Unknown]
  - Head injury [Unknown]
  - Fall [Unknown]
  - Loss of consciousness [Unknown]
  - Parkinson^s disease psychosis [Recovering/Resolving]
